FAERS Safety Report 13086179 (Version 1)
Quarter: 2017Q1

REPORT INFORMATION
  Report Type: Spontaneous
  Country: IT (occurrence: IT)
  Receive Date: 20170104
  Receipt Date: 20170104
  Transmission Date: 20170428
  Serious: Yes (Other)
  Sender: FDA-Public Use
  Company Number: IT-MYLANLABS-2016M1059254

PATIENT

DRUGS (1)
  1. MACLADIN [Suspect]
     Active Substance: CLARITHROMYCIN
     Indication: TRACHEITIS
     Dosage: 500 MG, QD
     Dates: start: 20161212, end: 20161214

REACTIONS (2)
  - Dysentery [Unknown]
  - Nausea [Unknown]

NARRATIVE: CASE EVENT DATE: 20161212
